FAERS Safety Report 8418151-3 (Version None)
Quarter: 2012Q2

REPORT INFORMATION
  Report Type: 
  Country: None (occurrence: None)
  Receive Date: 20120607
  Receipt Date: 20120530
  Transmission Date: 20120825
  Serious: Yes (Hospitalization)
  Sender: FDA-Public Use
  Company Number: US-BAYER-2012-014459

PATIENT
  Age: 27 Year
  Sex: Female
  Weight: 70.295 kg

DRUGS (22)
  1. YASMIN [Suspect]
     Indication: PREMENSTRUAL SYNDROME
  2. STRATTERA [Concomitant]
     Indication: ATTENTION DEFICIT/HYPERACTIVITY DISORDER
     Dosage: 60 MG, UNK
     Dates: start: 20020101
  3. TRAMADOL HCL [Concomitant]
     Indication: PAIN
     Dosage: 50 MG, EVERY 6 HOURS AS NEEDED
  4. ALBUTEROL [Concomitant]
     Indication: COUGH
  5. YASMIN [Suspect]
     Indication: POLYCYSTIC OVARIES
  6. YAZ [Suspect]
     Indication: CONTRACEPTION
     Dosage: UNK
     Dates: start: 20070827, end: 20091110
  7. YAZ [Suspect]
     Indication: POLYCYSTIC OVARIES
  8. SUDAFED 12 HOUR [Concomitant]
     Indication: SINUS DISORDER
  9. YASMIN [Suspect]
     Indication: CONTRACEPTION
     Dosage: UNK
     Route: 048
     Dates: start: 20051019, end: 20061015
  10. PREVIDENT BOOSTER [Concomitant]
     Indication: GINGIVAL PAIN
     Dosage: BRUSH DAILY ONCE WITH PEA SIZE SOFT BRISTLE
     Dates: start: 20090101
  11. CALCIUM CARBONATE [Concomitant]
     Indication: DYSPEPSIA
  12. FLAGYL [Concomitant]
     Indication: DIVERTICULITIS
     Dosage: 500 MG, BID
     Dates: start: 20091111, end: 20091117
  13. VICODIN [Concomitant]
     Indication: PAIN
     Dosage: 5/500 1-2 TABLETS Q 8 HOURS
  14. ALBUTEROL [Concomitant]
     Indication: DYSPNOEA
     Dosage: 2 PUFF(S), Q4HR AS NEEDED
  15. YAZ [Suspect]
     Indication: PREMENSTRUAL SYNDROME
  16. ALBUTEROL [Concomitant]
     Indication: WHEEZING
  17. MONONESSA-28 [Concomitant]
  18. PRILOSEC [Concomitant]
  19. BISMUTH SUBSALICYLATE [Concomitant]
  20. ASMANEX TWISTHALER [Concomitant]
     Indication: ASTHMA
     Dosage: 220 MCG 1 PUFF ONE TO TWO TIMES A DAY
     Dates: start: 20080601
  21. ZOMIG [Concomitant]
     Indication: HEADACHE
     Dosage: 5 MG, EVERY 24 HOURS AS NEEDED
  22. CIPROFLOXACIN [Concomitant]
     Indication: DIVERTICULITIS
     Dosage: 500 MG, BID
     Dates: start: 20091111, end: 20091120

REACTIONS (7)
  - INJURY [None]
  - PAIN [None]
  - VOMITING [None]
  - DYSPEPSIA [None]
  - BILIARY DYSKINESIA [None]
  - ABDOMINAL PAIN [None]
  - DIARRHOEA [None]
